FAERS Safety Report 22775583 (Version 5)
Quarter: 2024Q1

REPORT INFORMATION
  Report Type: Report from Study
  Country: US (occurrence: US)
  Receive Date: 20230802
  Receipt Date: 20240229
  Transmission Date: 20240409
  Serious: Yes (Hospitalization, Other)
  Sender: FDA-Public Use
  Company Number: US-ABBVIE-5350306

PATIENT
  Age: 84 Year
  Sex: Female
  Weight: 58.966 kg

DRUGS (2)
  1. HUMIRA [Suspect]
     Active Substance: ADALIMUMAB
     Indication: Crohn^s disease
     Dosage: HUMIRA 40MG/0.4ML,?FORM STRENGTH: 40 MILLIGRAM
     Route: 058
     Dates: start: 20220711, end: 202309
  2. CREON [Suspect]
     Active Substance: PANCRELIPASE AMYLASE\PANCRELIPASE LIPASE\PANCRELIPASE PROTEASE
     Indication: Product used for unknown indication
     Dosage: FORM STRENGTH: 24000 UNIT,?FREQUENCY TEXT: ONCE CAPSULE FOUR TIMES A DAY
     Route: 048
     Dates: start: 202207

REACTIONS (5)
  - Obstruction [Unknown]
  - Surgery [Unknown]
  - Neoplasm malignant [Unknown]
  - Ureteric cancer [Unknown]
  - Renal cancer [Unknown]

NARRATIVE: CASE EVENT DATE: 20231001
